FAERS Safety Report 7357081 (Version 2)
Quarter: 2014Q1

REPORT INFORMATION
  Report Type: Spontaneous
  Country: US (occurrence: US)
  Receive Date: 20100416
  Receipt Date: 20140123
  Transmission Date: 20141002
  Serious: No
  Sender: FDA-Public Use
  Company Number: US-JNJFOC-20100401952

PATIENT
  Sex: Female

DRUGS (8)
  1. DURAGESIC [Suspect]
     Indication: PAIN
     Route: 062
     Dates: start: 201003
  2. DURAGESIC [Suspect]
     Indication: PAIN
     Route: 062
     Dates: start: 200912, end: 201002
  3. DURAGESIC [Suspect]
     Indication: PAIN
     Route: 062
     Dates: start: 200911, end: 200912
  4. DURAGESIC [Suspect]
     Indication: PAIN
     Route: 062
     Dates: start: 201002, end: 201003
  5. SYNTHROID [Concomitant]
     Indication: THYROID DISORDER
     Route: 048
  6. DIAZEPAM [Concomitant]
     Route: 048
  7. PREMARIN [Concomitant]
     Route: 048
  8. FUROSEMIDE [Concomitant]
     Indication: SWELLING
     Route: 048
     Dates: start: 200911

REACTIONS (4)
  - Drug ineffective [Not Recovered/Not Resolved]
  - Constipation [Not Recovered/Not Resolved]
  - Wrong technique in drug usage process [Unknown]
  - Product physical issue [Unknown]
